FAERS Safety Report 21236829 (Version 1)
Quarter: 2022Q3

REPORT INFORMATION
  Report Type: Spontaneous
  Country: US (occurrence: US)
  Receive Date: 20220822
  Receipt Date: 20220822
  Transmission Date: 20221027
  Serious: No
  Sender: FDA-Public Use
  Company Number: US-LEO Pharma-344785

PATIENT
  Sex: Female

DRUGS (1)
  1. ADBRY [Suspect]
     Active Substance: TRALOKINUMAB-LDRM
     Indication: Dermatitis atopic
     Dosage: DOSAGE : 600 MG UNDER THE SKIN ON DAY 1 THEN START MAINTENANCE DOSE AT 300 MG EVERY TWO WEEKS
     Route: 058
     Dates: start: 20220614

REACTIONS (1)
  - Eye disorder [Unknown]
